FAERS Safety Report 7334874-1 (Version None)
Quarter: 2011Q1

REPORT INFORMATION
  Report Type: 
  Country: None (occurrence: None)
  Receive Date: 20110224
  Receipt Date: 20110211
  Transmission Date: 20110831
  Serious: Yes (Hospitalization)
  Sender: FDA-Public Use
  Company Number: 027424

PATIENT
  Sex: Male

DRUGS (1)
  1. CIMZIA [Suspect]
     Dosage: 200 MG 1X/2 WEEKS, SUBCUTANEOUS
     Route: 058

REACTIONS (1)
  - HOSPITALISATION [None]
